FAERS Safety Report 4665954-7 (Version None)
Quarter: 2005Q2

REPORT INFORMATION
  Report Type: 
  Country: None (occurrence: None)
  Receive Date: 20050517
  Receipt Date: 20050517
  Transmission Date: 20051028
  Serious: Yes (Hospitalization)
  Sender: FDA-Public Use
  Company Number: None

PATIENT
  Age: 48 Year
  Sex: Female
  Weight: 112.4921 kg

DRUGS (7)
  1. METHYLPHENIDATE HCL [Suspect]
     Indication: NARCOLEPSY
     Dosage: 5MG  AM AND NOON  ORAL
     Route: 048
     Dates: start: 20050201, end: 20050211
  2. BUSPIRONE HCL [Suspect]
     Indication: ANXIETY
     Dosage: 15MG  BID ORAL
     Route: 048
     Dates: start: 20030430, end: 20050211
  3. PAXIL [Concomitant]
  4. CONJUGATED ESTROGEN [Concomitant]
  5. HYDROCHLOROTHIAZIDE [Concomitant]
  6. ENALAPRIL MALEATE [Concomitant]
  7. TRAZODONE [Concomitant]

REACTIONS (2)
  - DEPRESSION [None]
  - SUICIDAL IDEATION [None]
